FAERS Safety Report 11231429 (Version 1)
Quarter: 2015Q3

REPORT INFORMATION
  Report Type: Spontaneous
  Country: CH (occurrence: CH)
  Receive Date: 20150701
  Receipt Date: 20150701
  Transmission Date: 20151125
  Serious: Yes (Other)
  Sender: FDA-Public Use
  Company Number: CH-GLAXOSMITHKLINE-CH2015093775

PATIENT
  Age: 32 Year
  Sex: Female

DRUGS (5)
  1. MABTHERA [Suspect]
     Active Substance: RITUXIMAB
     Indication: MULTIPLE SCLEROSIS
     Route: 041
     Dates: start: 20140730, end: 20150217
  2. PERFALGAN [Concomitant]
     Active Substance: ACETAMINOPHEN
     Route: 041
     Dates: start: 20150227, end: 20150301
  3. ZINACEF [Suspect]
     Active Substance: CEFUROXIME SODIUM
     Indication: BACTERIAL INFECTION
     Route: 041
     Dates: start: 20150227, end: 20150303
  4. CIPRALEX [Concomitant]
     Active Substance: ESCITALOPRAM OXALATE
     Route: 048
  5. ZOFRAN [Concomitant]
     Active Substance: ONDANSETRON HYDROCHLORIDE
     Route: 048

REACTIONS (2)
  - Lymphopenia [Recovered/Resolved]
  - Agranulocytosis [Recovered/Resolved]

NARRATIVE: CASE EVENT DATE: 20150304
